FAERS Safety Report 18090349 (Version 1)
Quarter: 2020Q3

REPORT INFORMATION
  Report Type: Spontaneous
  Country: US (occurrence: US)
  Receive Date: 20200730
  Receipt Date: 20200730
  Transmission Date: 20201103
  Serious: Yes (Other)
  Sender: FDA-Public Use
  Company Number: US-RECORDATI RARE DISEASES INC.-US-R13005-20-00091

PATIENT
  Age: 19 Month
  Sex: Female

DRUGS (1)
  1. METHAMPHETAMINE [Suspect]
     Active Substance: METHAMPHETAMINE
     Indication: PRODUCT USED FOR UNKNOWN INDICATION
     Route: 065

REACTIONS (7)
  - Pulseless electrical activity [Unknown]
  - Multi-organ disorder [Unknown]
  - Clonus [Unknown]
  - Acidosis [Unknown]
  - Toxicity to various agents [Unknown]
  - Mydriasis [Unknown]
  - Hyperglycaemia [Unknown]
